FAERS Safety Report 11898066 (Version 1)
Quarter: 2016Q1

REPORT INFORMATION
  Report Type: Spontaneous
  Country: US (occurrence: None)
  Receive Date: 20160107
  Receipt Date: 20160107
  Transmission Date: 20160526
  Serious: Yes (Hospitalization)
  Sender: FDA-Public Use
  Company Number: None

PATIENT
  Age: 71 Year
  Sex: Male
  Weight: 100.5 kg

DRUGS (1)
  1. APREMILAST [Suspect]
     Active Substance: APREMILAST
     Indication: PSORIATIC ARTHROPATHY
     Route: 048
     Dates: start: 20150616, end: 20150720

REACTIONS (8)
  - Anxiety [None]
  - Dizziness [None]
  - Affective disorder [None]
  - Diarrhoea [None]
  - Dehydration [None]
  - Asthenia [None]
  - Syncope [None]
  - Fall [None]

NARRATIVE: CASE EVENT DATE: 20150722
